FAERS Safety Report 8055830 (Version 8)
Quarter: 2012Q4

REPORT INFORMATION
  Report Type: 
  Country: US (occurrence: US)
  Receive Date: 20110726
  Receipt Date: 20121227
  Transmission Date: 20130627
  Serious: Yes (Hospitalization, Congenital Anomaly, Other)
  Sender: FDA-Public Use
  Company Number: US-PFIZER INC-2011105386

PATIENT
  Sex: Male
  Weight: 3.5 kg

DRUGS (9)
  1. SERTRALINE HCL [Suspect]
     Dosage: 100 mg, UNK
     Route: 064
  2. SERTRALINE HCL [Suspect]
     Dosage: UNK
     Route: 064
     Dates: start: 20060906
  3. SERTRALINE HCL [Suspect]
     Dosage: UNK
     Route: 064
     Dates: start: 20070205
  4. ZOLOFT [Suspect]
     Indication: POSTPARTUM DEPRESSION
     Dosage: 50 mg, 1x/day (every day before noon)
     Route: 064
     Dates: start: 20051212, end: 200702
  5. ZOLOFT [Suspect]
     Indication: ANXIETY
     Dosage: UNK
     Route: 064
     Dates: start: 20070410
  6. FERROUS SULFATE [Concomitant]
     Dosage: UNK
     Route: 064
     Dates: start: 20070507
  7. PRENATAL VITAMINS [Concomitant]
     Dosage: UNK
     Route: 064
     Dates: start: 200704
  8. CLINDAMYCIN [Concomitant]
     Dosage: 1%
     Route: 064
  9. MOTRIN [Concomitant]
     Dosage: UNK
     Route: 064

REACTIONS (23)
  - Foetal exposure during pregnancy [Unknown]
  - Neonatal respiratory distress syndrome [Recovered/Resolved]
  - Patent ductus arteriosus [Unknown]
  - Fallot^s tetralogy [Unknown]
  - Ventricular septal defect [Unknown]
  - Cardiac failure congestive [Unknown]
  - Congenital arterial malformation [Unknown]
  - Pulmonary artery atresia [Unknown]
  - Atrial septal defect [Unknown]
  - Transposition of the great vessels [Unknown]
  - Tricuspid valve incompetence [Unknown]
  - Ventricular hypoplasia [Unknown]
  - Tricuspid valve disease [Unknown]
  - Pulmonary vascular disorder [Unknown]
  - Right atrial dilatation [Unknown]
  - Pneumothorax [Unknown]
  - Pneumonia [Unknown]
  - Jaundice [Unknown]
  - Hydronephrosis [Unknown]
  - Heart disease congenital [Unknown]
  - Exostosis [Unknown]
  - Pulmonary vascular disorder [Unknown]
  - Fibrinous bronchitis [Unknown]
